FAERS Safety Report 18959420 (Version 8)
Quarter: 2022Q3

REPORT INFORMATION
  Report Type: Other
  Country: CN (occurrence: None)
  Receive Date: 20210302
  Receipt Date: 20220828
  Transmission Date: 20221026
  Serious: No
  Sender: FDA-Public Use
  Company Number: CN-ROCHE-2682787

PATIENT
  Age: 57 Year
  Sex: Female
  Weight: 50 kg

DRUGS (2)
  1. AVASTIN [Suspect]
     Active Substance: BEVACIZUMAB
     Indication: Colon cancer
     Dosage: FORM OF ADMIN: 100 MG INJECTION
     Route: 041
     Dates: start: 20170804, end: 20201126
  2. AVASTIN [Suspect]
     Active Substance: BEVACIZUMAB
     Dosage: FORM OF ADMIN: 100MG, INJECTION
     Route: 041
     Dates: start: 20210222, end: 20220714

REACTIONS (11)
  - Bladder cyst [Unknown]
  - Pelvic cyst [Unknown]
  - Metabolic disorder [Unknown]
  - White blood cell count decreased [Unknown]
  - Liver disorder [Unknown]
  - Hepatic lesion [Not Recovered/Not Resolved]
  - Metastases to liver [Not Recovered/Not Resolved]
  - Blood creatinine increased [Unknown]
  - Proteinuria [Unknown]
  - Protein urine present [Unknown]
  - Blood creatinine increased [Unknown]

NARRATIVE: CASE EVENT DATE: 20220308
